FAERS Safety Report 13239395 (Version 2)
Quarter: 2017Q1

REPORT INFORMATION
  Report Type: Spontaneous
  Country: AU (occurrence: AU)
  Receive Date: 20170216
  Receipt Date: 20170306
  Transmission Date: 20170428
  Serious: Yes (Life-Threatening, Other)
  Sender: FDA-Public Use
  Company Number: AU-PFIZER INC-2017068181

PATIENT
  Age: 62 Year
  Sex: Male

DRUGS (4)
  1. ETOPOSIDE. [Suspect]
     Active Substance: ETOPOSIDE
     Indication: CASTLEMAN^S DISEASE
     Dosage: 100 MG/M2, CYCLIC (TWO CYCLES)
  2. VINCRISTINE SULFATE. [Suspect]
     Active Substance: VINCRISTINE SULFATE
     Indication: CASTLEMAN^S DISEASE
     Dosage: 1.4 MG/M2 D1 (D1; DOSE CAPPED AT 2 MG) (TWO CYCLES)
  3. PREDNISOLONE. [Suspect]
     Active Substance: PREDNISOLONE
     Indication: CASTLEMAN^S DISEASE
     Dosage: 100 MG, CYCLIC (D1-5) (TWO CYCLES)
  4. CYCLOPHOSPHAMIDE. [Suspect]
     Active Substance: CYCLOPHOSPHAMIDE
     Indication: CASTLEMAN^S DISEASE
     Dosage: 750 MG/M2, CYCLIC (TWO CYCLES)

REACTIONS (1)
  - Pneumonia [Unknown]
